FAERS Safety Report 21811103 (Version 1)
Quarter: 2023Q1

REPORT INFORMATION
  Report Type: Spontaneous
  Country: US (occurrence: None)
  Receive Date: 20230103
  Receipt Date: 20230103
  Transmission Date: 20230418
  Serious: No
  Sender: FDA-Public Use
  Company Number: US-Eisai Medical Research-EC-2022-129015

PATIENT
  Sex: Female

DRUGS (13)
  1. ARICEPT [Suspect]
     Active Substance: DONEPEZIL HYDROCHLORIDE
     Indication: Product used for unknown indication
     Dosage: DOSE AND FREQUENCY UNKNOWN
     Route: 048
  2. LISINOPRIL [Concomitant]
     Active Substance: LISINOPRIL
  3. AMLODIPINE [Concomitant]
     Active Substance: AMLODIPINE BESYLATE
  4. CYANOCOBALAMIN [Concomitant]
     Active Substance: CYANOCOBALAMIN
  5. VITAMIN C [Concomitant]
     Active Substance: ASCORBIC ACID
  6. VITAMIN D3 [Concomitant]
     Active Substance: CHOLECALCIFEROL
  7. COPAXONE [Concomitant]
     Active Substance: GLATIRAMER ACETATE
  8. GLUCOSAMINE [Concomitant]
     Active Substance: GLUCOSAMINE
  9. RIZATRIPTAN [Concomitant]
     Active Substance: RIZATRIPTAN
  10. IMODIUM A-D [Concomitant]
     Active Substance: LOPERAMIDE HYDROCHLORIDE
  11. PAROXETINE [Concomitant]
     Active Substance: PAROXETINE
  12. CLOTRIMAZOLE [Concomitant]
     Active Substance: CLOTRIMAZOLE
  13. CICLOPIROX [Concomitant]
     Active Substance: CICLOPIROX

REACTIONS (1)
  - Diarrhoea [Unknown]
